FAERS Safety Report 4593874-5 (Version None)
Quarter: 2005Q1

REPORT INFORMATION
  Report Type: 
  Country: None (occurrence: None)
  Receive Date: 20050301
  Receipt Date: 20050218
  Transmission Date: 20050727
  Serious: Yes (Hospitalization)
  Sender: FDA-Public Use
  Company Number: US-ROCHE-396279

PATIENT
  Age: 47 Year
  Sex: Female

DRUGS (2)
  1. PEGASYS [Suspect]
     Route: 058
     Dates: start: 20041002, end: 20050129
  2. RIBAVIRIN [Concomitant]
     Route: 048

REACTIONS (3)
  - PLATELET COUNT ABNORMAL [None]
  - THROMBOSIS [None]
  - VAGINAL HAEMORRHAGE [None]
